FAERS Safety Report 5781749-5 (Version None)
Quarter: 2008Q2

REPORT INFORMATION
  Report Type: 
  Country: None (occurrence: None)
  Receive Date: 20080623
  Receipt Date: 20071029
  Transmission Date: 20081010
  Serious: No
  Sender: FDA-Public Use
  Company Number: US-ASTRAZENECA-2007UW25057

PATIENT
  Sex: Male

DRUGS (3)
  1. RHINOCORT [Suspect]
     Indication: NASAL CONGESTION
     Dosage: SAMPLE
     Route: 045
  2. RHINOCORT [Interacting]
     Indication: POSTNASAL DRIP
     Dosage: SAMPLE
     Route: 045
  3. ALLEGRA-D [Interacting]

REACTIONS (3)
  - DRUG INTERACTION [None]
  - DRY THROAT [None]
  - INSOMNIA [None]
